FAERS Safety Report 10640318 (Version 1)
Quarter: 2014Q4

REPORT INFORMATION
  Report Type: Spontaneous
  Country: SE (occurrence: SE)
  Receive Date: 20141209
  Receipt Date: 20141209
  Transmission Date: 20150529
  Serious: Yes (Hospitalization)
  Sender: FDA-Public Use
  Company Number: SE-TEVA-525785ISR

PATIENT
  Age: 65 Year
  Sex: Female

DRUGS (12)
  1. DIGOXIN. [Concomitant]
     Active Substance: DIGOXIN
  2. SEROXAT [Concomitant]
     Active Substance: PAROXETINE HYDROCHLORIDE
  3. OMEPRAZOLE. [Concomitant]
     Active Substance: OMEPRAZOLE
  4. INSUMAN BASAL [Concomitant]
  5. ENALAPRIL [Concomitant]
     Active Substance: ENALAPRIL
  6. OXASCAND [Suspect]
     Active Substance: OXAZEPAM
     Route: 048
     Dates: start: 20131028, end: 20131028
  7. WARFARIN [Concomitant]
     Active Substance: WARFARIN
  8. PANOCOD [Suspect]
     Active Substance: ACETAMINOPHEN\CODEINE PHOSPHATE
     Dosage: 4-6 ST
     Route: 048
     Dates: start: 20131028, end: 20131028
  9. SPIRONOLACTONE. [Concomitant]
     Active Substance: SPIRONOLACTONE
  10. BISOPROLOL [Concomitant]
     Active Substance: BISOPROLOL
  11. FURIX [Concomitant]
     Active Substance: FUROSEMIDE
  12. GLYCERYL TRINITRATE [Concomitant]
     Active Substance: NITROGLYCERIN

REACTIONS (3)
  - Suicidal ideation [Recovered/Resolved]
  - Depressed level of consciousness [Recovered/Resolved]
  - Toxicity to various agents [Recovered/Resolved]

NARRATIVE: CASE EVENT DATE: 20131028
